FAERS Safety Report 11238363 (Version 2)
Quarter: 2015Q3

REPORT INFORMATION
  Report Type: Spontaneous
  Country: GB (occurrence: GB)
  Receive Date: 20150704
  Receipt Date: 20150815
  Transmission Date: 20151125
  Serious: Yes (Congenital Anomaly, Other)
  Sender: FDA-Public Use
  Company Number: GB-CIPLA LTD.-2015GB05252

PATIENT

DRUGS (5)
  1. CITALOPRAM [Suspect]
     Active Substance: CITALOPRAM HYDROBROMIDE
     Indication: ANXIETY
     Dosage: 10 MG  ONCE DAILY
     Route: 064
     Dates: start: 20100726, end: 20120517
  2. CITALOPRAM [Suspect]
     Active Substance: CITALOPRAM HYDROBROMIDE
     Indication: DEPRESSION
     Dosage: UNK
     Route: 065
     Dates: start: 2009, end: 201007
  3. FOLIC ACID. [Suspect]
     Active Substance: FOLIC ACID
     Dosage: 400 MCG DAILY
     Route: 064
     Dates: start: 20100921
  4. FLUOXETINE [Concomitant]
     Active Substance: FLUOXETINE\FLUOXETINE HYDROCHLORIDE
     Indication: PRODUCT USED FOR UNKNOWN INDICATION
     Dosage: UNK
     Route: 064
     Dates: end: 2010
  5. FLUCLOXACILLIN [Concomitant]
     Active Substance: FLUCLOXACILLIN
     Indication: PARONYCHIA
     Dosage: UNK
     Route: 064
     Dates: start: 20100802

REACTIONS (4)
  - Atrioventricular septal defect [Recovered/Resolved]
  - Mitral valve hypoplasia [Recovered/Resolved]
  - Foetal exposure during pregnancy [Recovered/Resolved]
  - Aorta hypoplasia [Recovered/Resolved]

NARRATIVE: CASE EVENT DATE: 201009
